FAERS Safety Report 17199599 (Version 1)
Quarter: 2019Q4

REPORT INFORMATION
  Report Type: Spontaneous
  Country: PL (occurrence: PL)
  Receive Date: 20191226
  Receipt Date: 20191226
  Transmission Date: 20200122
  Serious: Yes (Life-Threatening)
  Sender: FDA-Public Use
  Company Number: PL-009507513-1912POL008489

PATIENT
  Age: 57 Year
  Sex: Female

DRUGS (1)
  1. CARBIDOPA (+) LEVODOPA [Suspect]
     Active Substance: CARBIDOPA\LEVODOPA
     Indication: PARKINSON^S DISEASE
     Dosage: 5 TIMES A DAY (6 A.M., 9 A.M. 12 P.M. 3 P.M. 6 P.M.)

REACTIONS (4)
  - Lacrimation increased [Unknown]
  - Blood pressure decreased [Unknown]
  - Flatulence [Unknown]
  - Heart rate decreased [Unknown]
